FAERS Safety Report 16215979 (Version 1)
Quarter: 2019Q2

REPORT INFORMATION
  Report Type: Spontaneous
  Country: US (occurrence: US)
  Receive Date: 20190419
  Receipt Date: 20190419
  Transmission Date: 20190711
  Serious: Yes (Hospitalization)
  Sender: FDA-Public Use
  Company Number: US-IPSEN BIOPHARMACEUTICALS, INC.-2019-06166

PATIENT
  Age: 4 Year
  Sex: Female

DRUGS (1)
  1. DYSPORT [Suspect]
     Active Substance: ABOBOTULINUMTOXINA
     Indication: MUSCLE SPASTICITY
     Dosage: 800 UNITS SPLIT BILATERALLY
     Route: 065
     Dates: start: 20190107, end: 20190107

REACTIONS (6)
  - Dysphagia [Recovered/Resolved]
  - Influenza [Recovered/Resolved]
  - Metabolic acidosis [Recovered/Resolved]
  - Eyelid ptosis [Recovered/Resolved]
  - Paresis [Recovered/Resolved]
  - Choking [Recovered/Resolved]

NARRATIVE: CASE EVENT DATE: 201901
